FAERS Safety Report 19447688 (Version 1)
Quarter: 2021Q2

REPORT INFORMATION
  Report Type: Spontaneous
  Country: US (occurrence: US)
  Receive Date: 20210622
  Receipt Date: 20210622
  Transmission Date: 20210717
  Serious: No
  Sender: FDA-Public Use
  Company Number: US-THERAPEUTICSMD-2021TMD01820

PATIENT
  Age: 58 Year
  Sex: Female
  Weight: 74.84 kg

DRUGS (7)
  1. LIPITOR [Concomitant]
     Active Substance: ATORVASTATIN CALCIUM
     Dosage: UNK, 1X/DAY
  2. IMVEXXY [Suspect]
     Active Substance: ESTRADIOL
     Indication: VULVOVAGINAL DRYNESS
     Dosage: 4 ?G, 2X/WEEK THEREAFTER
     Route: 067
     Dates: start: 202104
  3. IMVEXXY [Suspect]
     Active Substance: ESTRADIOL
     Indication: DYSPAREUNIA
     Dosage: 4 ?G
     Route: 067
     Dates: start: 20210401, end: 2021
  4. PRILOSEC [Concomitant]
     Active Substance: OMEPRAZOLE MAGNESIUM
     Dosage: UNK, 1X/DAY
  5. PROLIA [Concomitant]
     Active Substance: DENOSUMAB
     Dosage: UNK, 2X/YEAR (EVERY 6 MONTHS)
  6. REQUIP [Concomitant]
     Active Substance: ROPINIROLE HYDROCHLORIDE
     Dosage: UNK, 1X/DAY
  7. VARICELLA?ZOSTER VACCINE NOS [Suspect]
     Active Substance: VARICELLA-ZOSTER VACCINE
     Dosage: UNK
     Dates: start: 202103, end: 202103

REACTIONS (2)
  - Rash [Not Recovered/Not Resolved]
  - Vaginal discharge [Unknown]

NARRATIVE: CASE EVENT DATE: 202104
